FAERS Safety Report 4686935-3 (Version None)
Quarter: 2005Q2

REPORT INFORMATION
  Report Type: 
  Country: None (occurrence: None)
  Receive Date: 20050608
  Receipt Date: 20050531
  Transmission Date: 20051028
  Serious: Yes (Death)
  Sender: FDA-Public Use
  Company Number: 003#3#2005-00126

PATIENT
  Age: 78 Year
  Sex: Male

DRUGS (11)
  1. ISOSORBIDE MONONITRATE [Suspect]
  2. TIOTROPIUM BROMIDE [Suspect]
     Indication: CHRONIC OBSTRUCTIVE PULMONARY DISEASE
     Dosage: RESPIRATORY (PER INHALATION)
     Route: 055
     Dates: start: 20040201
  3. ACETAMINOPHEN W/ CODEINE [Suspect]
  4. SIMVASTATIN [Suspect]
  5. FUROSEMIDE [Suspect]
  6. ASPIRIN [Suspect]
  7. NICORANDIL (NICORANDIL) [Suspect]
  8. RABEPRAZOLE (RABEPRAZOLE SODIUM) [Suspect]
  9. SERETIDE (FLUTICASONE PROPIONATE, SALMETEROL) [Suspect]
  10. ALBUTEROL SULFATE HFA [Suspect]
  11. BISOPROLOL FUMARATE [Suspect]

REACTIONS (4)
  - CHRONIC OBSTRUCTIVE PULMONARY DISEASE [None]
  - LEFT VENTRICULAR FAILURE [None]
  - MYOCARDIAL ISCHAEMIA [None]
  - THERAPY NON-RESPONDER [None]
